FAERS Safety Report 7148602-6 (Version None)
Quarter: 2010Q4

REPORT INFORMATION
  Report Type: 
  Country: None (occurrence: None)
  Receive Date: 20101209
  Receipt Date: 20100416
  Transmission Date: 20110411
  Serious: No
  Sender: FDA-Public Use
  Company Number: A0845943A

PATIENT
  Age: 60 Year
  Sex: Female
  Weight: 144.5 kg

DRUGS (13)
  1. AVANDAMET [Suspect]
     Route: 048
     Dates: start: 20080101, end: 20100127
  2. AVANDIA [Suspect]
     Route: 048
  3. VITAMIN B-12 [Concomitant]
  4. ASPIRIN [Concomitant]
  5. CINNAMON [Concomitant]
     Route: 048
  6. FISH OIL [Concomitant]
  7. CRESTOR [Concomitant]
     Dosage: 10MG PER DAY
  8. VITAMIN TAB [Concomitant]
  9. TRIAMTERENE AND HYDROCHLOROTHIAZIDE [Concomitant]
  10. AMARYL [Concomitant]
     Dosage: 4MG TWICE PER DAY
  11. LISINOPRIL [Concomitant]
     Dosage: 5MG PER DAY
  12. BYETTA [Concomitant]
     Dosage: 10MG TWICE PER DAY
  13. MULTIVITAMIN [Concomitant]

REACTIONS (10)
  - ABASIA [None]
  - CATHETERISATION CARDIAC [None]
  - CHEST PAIN [None]
  - CORONARY ARTERY DISEASE [None]
  - DYSPNOEA [None]
  - FATIGUE [None]
  - JOINT SWELLING [None]
  - OEDEMA PERIPHERAL [None]
  - SWELLING [None]
  - SWELLING FACE [None]
